FAERS Safety Report 7817098-0 (Version None)
Quarter: 2011Q4

REPORT INFORMATION
  Report Type: 
  Country: None (occurrence: None)
  Receive Date: 20111017
  Receipt Date: 20111004
  Transmission Date: 20120403
  Serious: Yes (Hospitalization)
  Sender: FDA-Public Use
  Company Number: FR-KINGPHARMUSA00001-K201101173

PATIENT
  Sex: Female

DRUGS (12)
  1. NITROGLYCERIN [Suspect]
     Indication: ANGINA PECTORIS
     Dosage: 5 MG, QD
     Route: 062
     Dates: end: 20110901
  2. ROSUVASTATIN [Concomitant]
     Indication: HYPERCHOLESTEROLAEMIA
  3. PANTOPRAZOLE [Concomitant]
  4. ALTACE [Suspect]
     Dosage: 0.625 MG, QD
     Route: 048
  5. GAVISCON [Concomitant]
  6. CITALOPRAM [Concomitant]
     Indication: DEPRESSION
     Route: 048
  7. ALTACE [Suspect]
     Indication: HYPERTENSION
     Dosage: 1.25 MG, QD
     Route: 048
  8. METOPROLOL TARTRATE [Suspect]
     Indication: HYPERTENSION
     Dosage: 50 MG, QD
     Route: 048
  9. VALPROIC ACID [Concomitant]
     Indication: BIPOLAR DISORDER
  10. ASPIRIN [Concomitant]
  11. CLONAZEPAM [Suspect]
     Dosage: 2.5 MG/ML, UNK
     Route: 048
     Dates: end: 20110901
  12. ACETAMINOPHEN [Concomitant]
     Indication: PAIN

REACTIONS (7)
  - RALES [None]
  - FALL [None]
  - COUGH [None]
  - HAEMATOMA [None]
  - ORTHOSTATIC HYPOTENSION [None]
  - PERIORBITAL HAEMATOMA [None]
  - DISORIENTATION [None]
